FAERS Safety Report 17570670 (Version 2)
Quarter: 2020Q2

REPORT INFORMATION
  Report Type: Spontaneous
  Country: US (occurrence: US)
  Receive Date: 20200323
  Receipt Date: 20200414
  Transmission Date: 20200713
  Serious: Yes (Other)
  Sender: FDA-Public Use
  Company Number: US-AUROBINDO-AUR-APL-2020-015068

PATIENT
  Sex: Male

DRUGS (1)
  1. AMIODARONE HYDROCHLORIDE 200 MG TABLET [Suspect]
     Active Substance: AMIODARONE HYDROCHLORIDE
     Indication: ATRIAL FIBRILLATION
     Dosage: UNK
     Route: 065

REACTIONS (12)
  - Dyspnoea [Unknown]
  - Cough [Unknown]
  - Dyspnoea exertional [Unknown]
  - Arthralgia [Unknown]
  - Gait disturbance [Unknown]
  - Wheezing [Unknown]
  - Interstitial lung disease [Unknown]
  - Asthenia [Unknown]
  - Weight increased [Unknown]
  - Off label use [Unknown]
  - Pneumonia [Unknown]
  - Fatigue [Unknown]

NARRATIVE: CASE EVENT DATE: 201605
